FAERS Safety Report 10489429 (Version 2)
Quarter: 2014Q4

REPORT INFORMATION
  Report Type: Spontaneous
  Country: US (occurrence: US)
  Receive Date: 20141002
  Receipt Date: 20141119
  Transmission Date: 20150528
  Serious: No
  Sender: FDA-Public Use
  Company Number: US-JNJFOC-20140921926

PATIENT
  Sex: Male

DRUGS (2)
  1. HALOPERIDOL DECANOATE. [Suspect]
     Active Substance: HALOPERIDOL DECANOATE
     Indication: PRODUCT USED FOR UNKNOWN INDICATION
     Route: 030
  2. INVEGA SUSTENNA [Suspect]
     Active Substance: PALIPERIDONE PALMITATE
     Indication: PRODUCT USED FOR UNKNOWN INDICATION
     Route: 030

REACTIONS (2)
  - Psychotic disorder [Unknown]
  - Delirium [Unknown]
